FAERS Safety Report 10039357 (Version 5)
Quarter: 2014Q2

REPORT INFORMATION
  Report Type: Report from Study
  Country: MY (occurrence: MY)
  Receive Date: 20140326
  Receipt Date: 20140606
  Transmission Date: 20141212
  Serious: Yes (Hospitalization)
  Sender: FDA-Public Use
  Company Number: MY-OTSUKA-US-2014-10422

PATIENT
  Age: 47 Year
  Sex: Female

DRUGS (1)
  1. OPC-14597 [Suspect]
     Indication: BIPOLAR I DISORDER
     Dosage: 400 MG MILLIGRAM(S), UNK
     Route: 030
     Dates: start: 20130828, end: 20140212

REACTIONS (1)
  - Bipolar disorder [Recovered/Resolved]
